FAERS Safety Report 10270188 (Version 1)
Quarter: 2014Q2

REPORT INFORMATION
  Report Type: Spontaneous
  Country: US (occurrence: None)
  Receive Date: 20140626
  Receipt Date: 20140626
  Transmission Date: 20141212
  Serious: Yes (Hospitalization)
  Sender: FDA-Public Use
  Company Number: UNT-2014-002521

PATIENT
  Sex: Female
  Weight: 99.8 kg

DRUGS (3)
  1. REMODULIN (TREPROSTINIL SODIUM) INJECTION, 5MG/ML [Suspect]
     Indication: COR PULMONALE CHRONIC
     Dosage: 0.025 UG/KG, CONTINUING, SUBCUTANEOUS?
     Route: 058
     Dates: start: 20130803
  2. SILDENAFIL (SILDENAFIL) [Concomitant]
  3. COUMADIN /00014802/WARFARIN SODIUM) [Concomitant]

REACTIONS (1)
  - Lung operation [None]
